FAERS Safety Report 23057466 (Version 8)
Quarter: 2024Q1

REPORT INFORMATION
  Report Type: Spontaneous
  Country: US (occurrence: US)
  Receive Date: 20231012
  Receipt Date: 20240112
  Transmission Date: 20240410
  Serious: Yes (Other)
  Sender: FDA-Public Use
  Company Number: US-EXELIXIS-CABO-23067996

PATIENT
  Age: 69 Year
  Sex: Male

DRUGS (7)
  1. NIVOLUMAB [Suspect]
     Active Substance: NIVOLUMAB
     Indication: Renal cell carcinoma
     Dosage: UNK, Q4WEEKS
     Dates: start: 20230823
  2. CABOMETYX [Suspect]
     Active Substance: CABOZANTINIB S-MALATE
     Indication: Renal cell carcinoma
     Dosage: 40 MG
     Dates: start: 20230823, end: 20231011
  3. CABOMETYX [Suspect]
     Active Substance: CABOZANTINIB S-MALATE
     Dosage: 40 MG
     Dates: start: 20231101
  4. ROSUVASTATIN [Concomitant]
     Active Substance: ROSUVASTATIN
     Indication: Product used for unknown indication
  5. MORNIFLUMATE [Concomitant]
     Active Substance: MORNIFLUMATE
     Indication: Product used for unknown indication
  6. SYSTANE (HYPROMELLOSE 2910 (4000 MPA.S)) [Concomitant]
     Active Substance: HYPROMELLOSE 2910 (4000 MPA.S)
  7. CALCIUM\CHOLECALCIFEROL [Concomitant]
     Active Substance: CALCIUM\CHOLECALCIFEROL

REACTIONS (18)
  - Bone cancer [Recovered/Resolved]
  - Rash [Unknown]
  - Rash pruritic [Recovered/Resolved]
  - Blood pressure systolic increased [Recovering/Resolving]
  - Blood thyroid stimulating hormone increased [Recovered/Resolved]
  - Taste disorder [Unknown]
  - Dysphonia [Unknown]
  - Skin ulcer [Not Recovered/Not Resolved]
  - Pruritus genital [Unknown]
  - Genital erythema [Unknown]
  - Eye pruritus [Unknown]
  - Eyelid margin crusting [Unknown]
  - Hypoaesthesia [Not Recovered/Not Resolved]
  - Lip pain [Unknown]
  - Gingival pain [Unknown]
  - Oral pain [Unknown]
  - Weight decreased [Unknown]
  - Decreased appetite [Unknown]

NARRATIVE: CASE EVENT DATE: 20230101
